FAERS Safety Report 21761189 (Version 1)
Quarter: 2022Q4

REPORT INFORMATION
  Report Type: Report from Study
  Country: IT (occurrence: IT)
  Receive Date: 20221221
  Receipt Date: 20221221
  Transmission Date: 20230112
  Serious: Yes (Hospitalization, Other)
  Sender: FDA-Public Use
  Company Number: None

PATIENT
  Age: 10 Year
  Sex: Male
  Weight: 43 kg

DRUGS (8)
  1. VINCRISTINE [Suspect]
     Active Substance: VINCRISTINE
     Indication: Burkitt^s lymphoma
     Dosage: 2 MILLIGRAM DAILY;
     Route: 065
     Dates: start: 20221004, end: 20221004
  2. METHOTREXATE (METHOTREXATE SODIUM) [Suspect]
     Active Substance: METHOTREXATE SODIUM
     Indication: Burkitt^s lymphoma
     Dosage: 707 MG/DAY + 6363 MG/DAY FROM 04/10 TO 05/10/22, DURATION : 1 DAYS
     Route: 065
     Dates: start: 20221004, end: 20221005
  3. ELDISINE [Suspect]
     Active Substance: VINDESINE SULFATE
     Indication: Burkitt^s lymphoma
     Dosage: 4 MILLIGRAM DAILY;
     Route: 065
     Dates: start: 20221028, end: 20221028
  4. IFOSFAMIDE [Suspect]
     Active Substance: IFOSFAMIDE
     Indication: Burkitt^s lymphoma
     Dosage: 1130 MG FROM 04.10. TO 09.10, DURATION : 5 DAYS
     Route: 065
     Dates: start: 20221004, end: 20221009
  5. RITUXIMAB [Suspect]
     Active Substance: RITUXIMAB
     Indication: Burkitt^s lymphoma
     Dosage: 530 MG/DAY ON 09/30, 10/04/22, 519 MG/DAY ON 10/27/22, DURATION : 27 DAYS
     Route: 065
     Dates: start: 20220930, end: 20221027
  6. CYCLOPHOSPHAMIDE [Suspect]
     Active Substance: CYCLOPHOSPHAMIDE
     Indication: Burkitt^s lymphoma
     Dosage: 282 MG ON 09/30 AND 10/01/2022, DURATION : 1 DAYS
     Route: 065
     Dates: start: 20220930, end: 20221001
  7. ETOPOSIDE [Suspect]
     Active Substance: ETOPOSIDE
     Indication: Burkitt^s lymphoma
     Dosage: 140 MG/DAY FROM ^08/10 TO 09/10 AND FROM 30.10 TO 01.11, DURATION : 24 DAYS
     Route: 065
     Dates: start: 20221008, end: 20221101
  8. CYTARABINE [Suspect]
     Active Substance: CYTARABINE
     Indication: Burkitt^s lymphoma
     Dosage: 4158 MG/DAY FROM 05/10 TO 09.10/22, 4158 MG/DAY FROM 10/28 TO 10/29/22, DURATION : 24 DAYS
     Route: 065
     Dates: start: 20221005, end: 20221029

REACTIONS (8)
  - Pancytopenia [Not Recovered/Not Resolved]
  - Klebsiella infection [Recovered/Resolved]
  - Hypogammaglobulinaemia [Unknown]
  - Febrile neutropenia [Recovered/Resolved]
  - Drug-induced liver injury [Not Recovered/Not Resolved]
  - Febrile neutropenia [Recovered/Resolved]
  - Anaemia [Not Recovered/Not Resolved]
  - Stomatitis [Recovered/Resolved]

NARRATIVE: CASE EVENT DATE: 20221008
